FAERS Safety Report 10929337 (Version 1)
Quarter: 2015Q1

REPORT INFORMATION
  Report Type: Spontaneous
  Country: US (occurrence: None)
  Receive Date: 20150318
  Receipt Date: 20150318
  Transmission Date: 20150721
  Serious: No
  Sender: FDA-Public Use
  Company Number: None

PATIENT
  Age: 78 Year
  Sex: Female
  Weight: 77.11 kg

DRUGS (1)
  1. ESCITALOPRAM 20 MG ACCORD HEALTHCA [Suspect]
     Active Substance: ESCITALOPRAM OXALATE
     Indication: DEPRESSION
     Dosage: 1 ONCE DAILY TAKEN BY MOUTH
     Route: 048

REACTIONS (4)
  - Product substitution issue [None]
  - Gastrointestinal disorder [None]
  - Depression [None]
  - Anxiety [None]

NARRATIVE: CASE EVENT DATE: 20150315
